FAERS Safety Report 24175114 (Version 3)
Quarter: 2024Q4

REPORT INFORMATION
  Report Type: Spontaneous
  Country: US (occurrence: US)
  Receive Date: 20240805
  Receipt Date: 20241127
  Transmission Date: 20250114
  Serious: No
  Sender: PFIZER
  Company Number: US-PFIZER INC-202400186029

PATIENT
  Age: 76 Year
  Sex: Female
  Weight: 74.84 kg

DRUGS (5)
  1. TUKYSA [Suspect]
     Active Substance: TUCATINIB
     Indication: Breast cancer
     Dosage: TWO IN THE MORNING AND THEN ONE IN THE EVENING
     Route: 048
     Dates: start: 202401
  2. TUKYSA [Suspect]
     Active Substance: TUCATINIB
     Dosage: DROPPED DOWN TO ONE AND ONE
     Route: 048
     Dates: start: 202402
  3. TUKYSA [Suspect]
     Active Substance: TUCATINIB
     Dosage: ONE TABLET, TWICE DAILY
     Route: 048
     Dates: end: 20241113
  4. TUKYSA [Suspect]
     Active Substance: TUCATINIB
     Dosage: TAKE ONE TABLET TWICE DAILY
     Route: 048
  5. CAPECITABINE [Suspect]
     Active Substance: CAPECITABINE
     Dosage: 2 TABLETS 500 MILLIGRAM EACH TWICE A DAY

REACTIONS (8)
  - Off label use [Unknown]
  - Product use issue [Unknown]
  - Wrong dosage formulation [Unknown]
  - Skin disorder [Recovered/Resolved]
  - Burning sensation [Recovered/Resolved]
  - Blister [Recovered/Resolved]
  - Onychomadesis [Recovered/Resolved]
  - Blood test abnormal [Unknown]

NARRATIVE: CASE EVENT DATE: 20240201
